FAERS Safety Report 6279742-1 (Version None)
Quarter: 2009Q3

REPORT INFORMATION
  Report Type: 
  Country: None (occurrence: None)
  Receive Date: 20090721
  Receipt Date: 20090710
  Transmission Date: 20100115
  Serious: Yes (Hospitalization)
  Sender: FDA-Public Use
  Company Number: 2009-1352

PATIENT
  Age: 70 Year
  Sex: Male

DRUGS (7)
  1. LANREOTIDE AUTOGEL                    (LANREOTIDE ACETATE) [Suspect]
     Indication: PROSTATE CANCER
     Dosage: (60 MG)
     Dates: start: 20090520
  2. METOHEXAL SVCC (METOPROLOL TARTRATE) [Concomitant]
  3. ATORVASTATIN CALCIUM [Concomitant]
  4. TORSEMIDE [Concomitant]
  5. IRBESARTAN [Concomitant]
  6. AVODART [Concomitant]
  7. CALCIUM D3 (CALCIUM D3) [Concomitant]

REACTIONS (1)
  - ACUTE MYOCARDIAL INFARCTION [None]
